FAERS Safety Report 6639702-5 (Version None)
Quarter: 2010Q1

REPORT INFORMATION
  Report Type: 
  Country: None (occurrence: None)
  Receive Date: 20100315
  Receipt Date: 20100302
  Transmission Date: 20100710
  Serious: Yes (Other)
  Sender: FDA-Public Use
  Company Number: 230074J10DEU

PATIENT
  Age: 58 Year
  Sex: Male

DRUGS (2)
  1. REBIF [Suspect]
     Indication: MULTIPLE SCLEROSIS
     Dosage: 44, 3 IN 1 WEEKS, SUBCUTANEOUS
     Route: 058
     Dates: start: 20040101
  2. KEPPRA [Suspect]
     Indication: EPILEPSY
     Dates: start: 20090101, end: 20090101

REACTIONS (3)
  - EPILEPSY [None]
  - INJECTION SITE NECROSIS [None]
  - INJECTION SITE REACTION [None]
